FAERS Safety Report 7016947-6 (Version None)
Quarter: 2010Q3

REPORT INFORMATION
  Report Type: 
  Country: None (occurrence: None)
  Receive Date: 20100927
  Receipt Date: 20100830
  Transmission Date: 20110219
  Serious: No
  Sender: FDA-Public Use
  Company Number: US-PFIZER INC-2009191759

PATIENT
  Sex: Female
  Weight: 65.8 kg

DRUGS (8)
  1. TIKOSYN [Suspect]
     Indication: ARRHYTHMIA
     Dosage: UNK
     Route: 048
     Dates: start: 20030101
  2. TIKOSYN [Suspect]
     Dosage: 325 UG, DAILY
     Dates: start: 20050101
  3. TIKOSYN [Suspect]
     Dosage: 0.375 MG, 2X/DAY
     Route: 048
     Dates: start: 20070901
  4. ERYTHROMYCIN [Suspect]
     Indication: SINUSITIS
     Dosage: UNK
  5. CIPROFLOXACIN [Suspect]
     Dosage: UNK
  6. ASPIRINE [Concomitant]
  7. ZOCOR [Concomitant]
  8. CLOBETASOL [Concomitant]

REACTIONS (4)
  - ARRHYTHMIA [None]
  - DRUG HYPERSENSITIVITY [None]
  - SINUSITIS [None]
  - TOOTH INFECTION [None]
